FAERS Safety Report 16692471 (Version 1)
Quarter: 2019Q3

REPORT INFORMATION
  Report Type: Spontaneous
  Country: US (occurrence: US)
  Receive Date: 20190812
  Receipt Date: 20190812
  Transmission Date: 20191004
  Serious: No
  Sender: FDA-Public Use
  Company Number: US-PFIZER INC-2019340297

PATIENT
  Age: 70 Year
  Sex: Male
  Weight: 97.52 kg

DRUGS (3)
  1. GENOTROPIN [Suspect]
     Active Substance: SOMATROPIN
     Dosage: 0.4 MG, 1X/DAY (0.4MG IN LEG INJECTED EVERY NIGHT)
     Dates: start: 2016
  2. GENOTROPIN [Suspect]
     Active Substance: SOMATROPIN
     Indication: GROWTH HORMONE DEFICIENCY
     Dosage: 0.5 MG, UNK
  3. GENOTROPIN [Suspect]
     Active Substance: SOMATROPIN
     Dosage: 0.4 MG, 1X/DAY (0.4MG IN LEG INJECTED EVERY NIGHT)
     Dates: start: 2016

REACTIONS (1)
  - Blood growth hormone increased [Unknown]

NARRATIVE: CASE EVENT DATE: 2019
